FAERS Safety Report 5792293-3 (Version None)
Quarter: 2008Q2

REPORT INFORMATION
  Report Type: 
  Country: None (occurrence: None)
  Receive Date: 20080626
  Receipt Date: 20080529
  Transmission Date: 20081010
  Serious: No
  Sender: FDA-Public Use
  Company Number: US-ASTRAZENECA-2008UW08434

PATIENT
  Sex: Female

DRUGS (1)
  1. PULMICORT-100 [Suspect]
     Indication: ASTHMA
     Route: 055

REACTIONS (2)
  - PHARMACEUTICAL PRODUCT COMPLAINT [None]
  - PULMONARY FUNCTION TEST DECREASED [None]
